FAERS Safety Report 6382592-9 (Version None)
Quarter: 2009Q3

REPORT INFORMATION
  Report Type: 
  Country: None (occurrence: None)
  Receive Date: 20090930
  Receipt Date: 20090924
  Transmission Date: 20100115
  Serious: Yes (Hospitalization)
  Sender: FDA-Public Use
  Company Number: B0594854A

PATIENT
  Sex: Male

DRUGS (3)
  1. AUGMENTIN '125' [Suspect]
     Indication: HYPERTHERMIA
     Dosage: 1G THREE TIMES PER DAY
     Route: 048
     Dates: start: 20090905, end: 20090908
  2. CORENITEC [Concomitant]
     Route: 065
  3. PRAZEPAM [Concomitant]
     Route: 065

REACTIONS (8)
  - ACUTE GENERALISED EXANTHEMATOUS PUSTULOSIS [None]
  - CHOLESTASIS [None]
  - DEHYDRATION [None]
  - HEPATOCELLULAR INJURY [None]
  - PYREXIA [None]
  - RASH PUSTULAR [None]
  - RENAL FAILURE ACUTE [None]
  - TOXIC SKIN ERUPTION [None]
